FAERS Safety Report 7730439-8 (Version None)
Quarter: 2011Q3

REPORT INFORMATION
  Report Type: 
  Country: None (occurrence: None)
  Receive Date: 20110906
  Receipt Date: 20110831
  Transmission Date: 20111222
  Serious: Yes (Other)
  Sender: FDA-Public Use
  Company Number: PHEH2011US03031

PATIENT
  Sex: Female

DRUGS (7)
  1. RYTHMOL [Concomitant]
     Dosage: 225 MG, TID
  2. URSODIOL [Concomitant]
     Dosage: 500 MG, TID
  3. LEVOTHYROXINE SODIUM [Concomitant]
     Dosage: 75 MG, UNK
  4. RECLAST [Suspect]
     Dosage: UNK UKN, UNK
     Route: 042
  5. TOPROL-XL [Concomitant]
     Dosage: 50 MG, QD
  6. TRIBENZOR [Concomitant]
     Dosage: UNK UKN, UNK
  7. PRILOSEC [Concomitant]
     Dosage: UNK UKN, QD

REACTIONS (4)
  - LIVER DISORDER [None]
  - THYROID DISORDER [None]
  - PRURITUS [None]
  - HYPERTENSION [None]
